FAERS Safety Report 8457027-2 (Version None)
Quarter: 2012Q2

REPORT INFORMATION
  Report Type: 
  Country: None (occurrence: None)
  Receive Date: 20120614
  Receipt Date: 20120531
  Transmission Date: 20120825
  Serious: Yes (Life-Threatening, Other)
  Sender: FDA-Public Use
  Company Number: 1126658

PATIENT
  Age: 62 Year
  Sex: Male
  Weight: 35.3806 kg

DRUGS (1)
  1. METHOTREXATE [Suspect]
     Indication: RHEUMATOID ARTHRITIS
     Dosage: 7.5 MG MILLIGRAM(S), 1 WEEK, ORAL
     Route: 048

REACTIONS (5)
  - BIPOLAR DISORDER [None]
  - COGNITIVE DISORDER [None]
  - SUICIDE ATTEMPT [None]
  - FRONTOTEMPORAL DEMENTIA [None]
  - DEMENTIA [None]
